FAERS Safety Report 7496913-7 (Version None)
Quarter: 2011Q2

REPORT INFORMATION
  Report Type: 
  Country: None (occurrence: None)
  Receive Date: 20110523
  Receipt Date: 20110426
  Transmission Date: 20111010
  Serious: Yes (Hospitalization, Other)
  Sender: FDA-Public Use
  Company Number: US-JNJFOC-20110312035

PATIENT
  Sex: Female
  Weight: 73.26 kg

DRUGS (13)
  1. NUCYNTA [Suspect]
     Indication: ANALGESIC THERAPY
     Route: 048
  2. TRILEPTAL [Concomitant]
     Indication: TRIGEMINAL NEURALGIA
     Route: 065
     Dates: start: 20080901
  3. ADVAIR DISKUS 100/50 [Concomitant]
     Indication: ASTHMA
     Dosage: DOSE: 100-50
     Route: 065
  4. NEURONTIN [Concomitant]
     Indication: FIBROMYALGIA
     Route: 065
     Dates: start: 20101108
  5. UNKNOWN MULTIPLE MEDICATION [Concomitant]
     Route: 065
  6. OMEPRAZOLE [Concomitant]
     Route: 065
  7. NUCYNTA [Suspect]
     Indication: PAIN
     Route: 048
  8. PREDNISONE [Concomitant]
     Route: 065
  9. VITAMIN B-12 [Concomitant]
     Route: 065
  10. VITAMIN D [Concomitant]
     Route: 065
  11. ANTIVERT [Concomitant]
     Indication: VERTIGO
     Route: 065
     Dates: start: 20060901
  12. ASPIRIN [Concomitant]
     Indication: PROPHYLAXIS
     Route: 065
  13. PLAQUENIL [Concomitant]
     Route: 065

REACTIONS (3)
  - TACHYCARDIA [None]
  - LOSS OF CONSCIOUSNESS [None]
  - PALPITATIONS [None]
